FAERS Safety Report 6091555-2 (Version None)
Quarter: 2009Q1

REPORT INFORMATION
  Report Type: 
  Country: None (occurrence: None)
  Receive Date: 20090225
  Receipt Date: 20080903
  Transmission Date: 20090719
  Serious: No
  Sender: FDA-Public Use
  Company Number: A0690552A

PATIENT
  Age: 80 Year
  Sex: Female

DRUGS (8)
  1. VALTREX [Suspect]
     Route: 048
  2. TIMOLOL [Concomitant]
  3. XALATAN [Concomitant]
  4. UNKNOWN MEDICATION [Concomitant]
  5. ALOCRIL [Concomitant]
  6. VITAMIN [Concomitant]
  7. ASPIRIN [Concomitant]
  8. UNKNOWN EYE MEDICATION [Concomitant]

REACTIONS (13)
  - ABDOMINAL DISCOMFORT [None]
  - DIARRHOEA [None]
  - DRUG INEFFECTIVE [None]
  - ERYTHEMA [None]
  - FATIGUE [None]
  - FLUID RETENTION [None]
  - HERPES VIRUS INFECTION [None]
  - IMPAIRED HEALING [None]
  - ORAL HERPES [None]
  - PRURITUS [None]
  - RASH [None]
  - RASH PAPULAR [None]
  - SKIN DISORDER [None]
